FAERS Safety Report 8931325 (Version 1)
Quarter: 2012Q4

REPORT INFORMATION
  Report Type: 
  Country: US (occurrence: US)
  Receive Date: 20121121
  Receipt Date: 20121121
  Transmission Date: 20130627
  Serious: Yes (Death)
  Sender: FDA-Public Use
  Company Number: US-ASTELLAS-1092726

PATIENT
  Sex: Male

DRUGS (3)
  1. TARCEVA [Suspect]
     Indication: NEUTROPENIA
     Route: 065
  2. TARCEVA [Suspect]
     Indication: AGRANULOCYTOSIS
  3. TARCEVA [Suspect]
     Indication: PANCREATIC CARCINOMA

REACTIONS (1)
  - Death [Fatal]
